FAERS Safety Report 21209984 (Version 1)
Quarter: 2022Q3

REPORT INFORMATION
  Report Type: Spontaneous
  Country: US (occurrence: US)
  Receive Date: 20220813
  Receipt Date: 20220813
  Transmission Date: 20221026
  Serious: No
  Sender: FDA-Public Use
  Company Number: US-NOVARTISTESTPH-NVSC2022US183908

PATIENT
  Sex: Female

DRUGS (3)
  1. LETROZOLE [Suspect]
     Active Substance: LETROZOLE
     Indication: Breast cancer metastatic
     Dosage: UNK
     Route: 065
     Dates: end: 20220624
  2. IBRANCE [Suspect]
     Active Substance: PALBOCICLIB
     Indication: Breast cancer metastatic
     Dosage: UNK
     Route: 065
     Dates: end: 20220624
  3. AROMASIN [Suspect]
     Active Substance: EXEMESTANE
     Indication: Breast cancer metastatic
     Dosage: UNK
     Route: 065
     Dates: end: 20220624

REACTIONS (7)
  - Movement disorder [Unknown]
  - Cognitive disorder [Unknown]
  - Feeling abnormal [Unknown]
  - Pain [Unknown]
  - Fatigue [Unknown]
  - Fibromyalgia [Unknown]
  - Stress [Unknown]
